FAERS Safety Report 4688129-4 (Version None)
Quarter: 2005Q2

REPORT INFORMATION
  Report Type: 
  Country: None (occurrence: None)
  Receive Date: 20050609
  Receipt Date: 20050531
  Transmission Date: 20051028
  Serious: Yes (Other)
  Sender: FDA-Public Use
  Company Number: US-2005-009236

PATIENT
  Age: 52 Year
  Sex: Female

DRUGS (5)
  1. BETASERON [Suspect]
     Indication: MULTIPLE SCLEROSIS
     Dosage: SUBCUTANEOUS
     Route: 058
     Dates: start: 19980401, end: 20001201
  2. BETASERON [Suspect]
     Indication: MULTIPLE SCLEROSIS
     Dosage: SUBCUTANEOUS
     Route: 058
     Dates: start: 20021201
  3. LISINOPRIL [Concomitant]
  4. GABAPENTIN [Concomitant]
  5. OXYBUTYNIN CHLORIDE [Concomitant]

REACTIONS (2)
  - RETINAL EXUDATES [None]
  - RETINOPATHY [None]
